FAERS Safety Report 23281559 (Version 1)
Quarter: 2023Q4

REPORT INFORMATION
  Report Type: Report from Study
  Country: US (occurrence: US)
  Receive Date: 20231211
  Receipt Date: 20231211
  Transmission Date: 20240109
  Serious: Yes (Hospitalization)
  Sender: FDA-Public Use
  Company Number: US-BIOVITRUM-2023-US-015770

PATIENT
  Age: 14 Month
  Sex: Male
  Weight: 7.81 kg

DRUGS (4)
  1. SYNAGIS [Suspect]
     Active Substance: PALIVIZUMAB
     Indication: Premature baby
     Dosage: 15 MG/KG EVERY 28 DAYS ?100MG/1ML AND 50MG/0.5ML
     Route: 030
  2. SYNAGIS [Suspect]
     Active Substance: PALIVIZUMAB
     Dosage: 117.17MG/150MG
  3. ALBUTEROL SULFATE [Concomitant]
     Active Substance: ALBUTEROL SULFATE
     Indication: Product used for unknown indication
  4. PREDNISONE [Concomitant]
     Active Substance: PREDNISONE
     Indication: Product used for unknown indication

REACTIONS (7)
  - Cough [Unknown]
  - Wheezing [Unknown]
  - Respiratory syncytial virus infection [Unknown]
  - Pyrexia [Unknown]
  - Product dose omission issue [Unknown]
  - Food allergy [Unknown]
  - Condition aggravated [Unknown]
